FAERS Safety Report 9115593 (Version 1)
Quarter: 2013Q1

REPORT INFORMATION
  Report Type: Spontaneous
  Country: DK (occurrence: None)
  Receive Date: 20130129
  Receipt Date: 20130129
  Transmission Date: 20140127
  Serious: Yes (Other)
  Sender: FDA-Public Use
  Company Number: 2013MA000718

PATIENT
  Age: 36 Year
  Sex: Female

DRUGS (1)
  1. ACYCLOVIR TABLETS, 800 MG (PUREPAC) (ACICLOVIR) [Suspect]
     Indication: HERPES SIMPLEX
     Route: 048
     Dates: start: 20120813, end: 20120816

REACTIONS (2)
  - Drug eruption [None]
  - Urticaria [None]
